FAERS Safety Report 16598427 (Version 1)
Quarter: 2019Q3

REPORT INFORMATION
  Report Type: Report from Study
  Country: CA (occurrence: CA)
  Receive Date: 20190719
  Receipt Date: 20190719
  Transmission Date: 20191004
  Serious: Yes (Other)
  Sender: FDA-Public Use
  Company Number: CA-EMD SERONO-E2B_90054954

PATIENT
  Age: 42 Year
  Sex: Female

DRUGS (2)
  1. MAVENCLAD [Suspect]
     Active Substance: CLADRIBINE
     Indication: MULTIPLE SCLEROSIS
     Dosage: FIRST YEAR FIRST WEEK THERAPY: TWO TABLETS (EACH OF 10 MG) ON DAYS 1 AND 2 AND ONE TABLET ON DAYS 3
     Route: 048
     Dates: start: 20180711
  2. MAVENCLAD [Suspect]
     Active Substance: CLADRIBINE
     Dosage: FIRST YEAR SECOND WEEK THERAPY: TWO TABLETS (EACH OF 10 MG) ON DAYS 1 AND 2 AND ONE TABLET ON DAYS 3
     Route: 048
     Dates: end: 20180820

REACTIONS (8)
  - Haemangioma of liver [Unknown]
  - Nephrolithiasis [Unknown]
  - Urinary tract infection [Unknown]
  - Alopecia [Recovering/Resolving]
  - Abdominal discomfort [Unknown]
  - Balance disorder [Unknown]
  - Vertigo [Unknown]
  - Nausea [Unknown]

NARRATIVE: CASE EVENT DATE: 201904
